FAERS Safety Report 21693540 (Version 2)
Quarter: 2022Q4

REPORT INFORMATION
  Report Type: Spontaneous
  Country: GB (occurrence: GB)
  Receive Date: 20221207
  Receipt Date: 20221229
  Transmission Date: 20230113
  Serious: Yes (Hospitalization, Other)
  Sender: FDA-Public Use
  Company Number: None

PATIENT
  Age: 67 Year
  Sex: Male

DRUGS (20)
  1. SERTRALINE [Suspect]
     Active Substance: SERTRALINE HYDROCHLORIDE
     Indication: Product used for unknown indication
     Dosage: 1 DOSAGE FORM, QD (ONE TO BE TAKEN EACH DAY - TAKES 1ON)
     Route: 065
     Dates: start: 20220324
  2. CALCIUM CARBONATE\CHOLECALCIFEROL [Concomitant]
     Active Substance: CALCIUM CARBONATE\CHOLECALCIFEROL
     Indication: Osteoporosis
     Dosage: 750 MILLIGRAM, BID (200 UNITS. ONE IN MORNING AND ONE AT NIGHT)
     Route: 065
     Dates: end: 20220112
  3. CALCIUM CARBONATE\CHOLECALCIFEROL [Concomitant]
     Active Substance: CALCIUM CARBONATE\CHOLECALCIFEROL
     Dosage: 750MG/200UNIT CAPLETS 2 TWICE A DAY - TAKES 1OM + 1ON
     Route: 065
     Dates: start: 20220324
  4. CALCIUM CARBONATE\CHOLECALCIFEROL [Concomitant]
     Active Substance: CALCIUM CARBONATE\CHOLECALCIFEROL
     Dosage: 1 DOSAGE FORM, BID (56 TABLET) 750MG/200UNIT CAPLETS
     Route: 065
  5. ALENDRONIC ACID [Concomitant]
     Active Substance: ALENDRONIC ACID
     Dosage: 1 DOSAGE FORM, QW-ONE TO BE TAKEN ON THE SAME DAY EACH WEEK - TUESDAY
     Route: 065
     Dates: start: 20220324
  6. LANSOPRAZOLE [Concomitant]
     Active Substance: LANSOPRAZOLE
     Dosage: 30 MILLIGRAM, QD (EACH MORNING)
     Route: 065
     Dates: start: 20220324
  7. NAPROXEN [Concomitant]
     Active Substance: NAPROXEN
     Dosage: 1 DOSAGE FORM, BID (ONE TO BE TAKEN TWICE A DAY 28 TABLET - 1OM + 1ON)
     Route: 065
     Dates: start: 20220331
  8. NAPROXEN [Concomitant]
     Active Substance: NAPROXEN
     Dosage: 500 MILLIGRAM, BID (1 EVERY MORNING AND AT NIGHT)
     Route: 065
  9. ACETAMINOPHEN [Concomitant]
     Active Substance: ACETAMINOPHEN
     Dosage: UNK
     Route: 065
  10. ACETAMINOPHEN [Concomitant]
     Active Substance: ACETAMINOPHEN
     Dosage: 1 OR 2 TO BE TAKEN EVERY 4-6 HR, TAKES 2TDS - QDS WITH TRAMADOL, MAX 8 TABS IN 24HR 200 TABLET
     Route: 065
  11. ALBUTEROL [Concomitant]
     Active Substance: ALBUTEROL
     Dosage: ONE OR TWO PUFFS TO BE INHALED UP TO FOUR TIMES A DAY
     Route: 055
     Dates: start: 20220324
  12. TRAMADOL [Concomitant]
     Active Substance: TRAMADOL
     Dosage: 50 MILLIGRAM (2 TO BE TAKEN INITIALLY THEN 1 OR 2 TO BE TAKEN EVERY FOUR TO SIX HOURS)
     Route: 065
     Dates: start: 20220331
  13. DALTEPARIN [Concomitant]
     Active Substance: DALTEPARIN
     Dosage: 0.2 MILLILITER, QD (ONCE A DAY FOR 23 DAYS AS DIRECTED, 5,000 UNITS IN 0.2ML INJECTION)
     Route: 058
  14. ISONIAZID [Concomitant]
     Active Substance: ISONIAZID
     Dosage: 300 MILLIGRAM, QD (EVERY MORNING)
     Route: 065
  15. FEXOFENADINE [Concomitant]
     Active Substance: FEXOFENADINE HYDROCHLORIDE
     Dosage: 120 MILLIGRAM, QD (30 TABLET - 1 EVERY MORNING)
     Route: 065
  16. RIFAMPIN [Concomitant]
     Active Substance: RIFAMPIN
     Dosage: 600 MILLIGRAM, QD (EVERY MORNING AS DIRECTED)
     Route: 065
  17. SARILUMAB [Concomitant]
     Active Substance: SARILUMAB
     Dosage: 1 DOSAGE FORM, BIWEEKLY (3 - HAS 1 INJECTION EVERY 2 WEEKS IN KNEE 200 MG INJECTION)
     Route: 065
  18. DOXYCYCLINE [Concomitant]
     Active Substance: DOXYCYCLINE
     Dosage: 100 MILLIGRAM, QD (7 CAPSULE - COMPLETE)
     Route: 065
  19. AMOXICILLIN [Concomitant]
     Active Substance: AMOXICILLIN
     Dosage: 500 MILLIGRAM, TID (15 CAPSULE - COMPLETE)
     Route: 065
  20. PYRIDOXINE [Concomitant]
     Active Substance: PYRIDOXINE
     Dosage: 10 MILLIGRAM, QD (EVERY MORNING)
     Route: 065

REACTIONS (2)
  - Femoral neck fracture [Unknown]
  - Bone density decreased [Unknown]
